FAERS Safety Report 6038539-8 (Version None)
Quarter: 2009Q1

REPORT INFORMATION
  Report Type: 
  Country: None (occurrence: None)
  Receive Date: 20090114
  Receipt Date: 20090114
  Transmission Date: 20090719
  Serious: Yes (Hospitalization)
  Sender: FDA-Public Use
  Company Number: None

PATIENT
  Age: 80 Year
  Sex: Male
  Weight: 59.8 kg

DRUGS (1)
  1. WARFARIN SODIUM [Suspect]
     Dosage: 4 MG AT BEDTIME PO
     Route: 048
     Dates: start: 20021114, end: 20080930

REACTIONS (1)
  - INTERNATIONAL NORMALISED RATIO INCREASED [None]
